FAERS Safety Report 4700005-7 (Version None)
Quarter: 2005Q2

REPORT INFORMATION
  Report Type: 
  Country: None (occurrence: None)
  Receive Date: 20050623
  Receipt Date: 20050607
  Transmission Date: 20051028
  Serious: Yes (Hospitalization)
  Sender: FDA-Public Use
  Company Number: 2005BI003768

PATIENT
  Age: 51 Year
  Sex: Female
  Weight: 68.0396 kg

DRUGS (6)
  1. AVONEX [Suspect]
     Indication: MULTIPLE SCLEROSIS
     Dosage: IM
     Route: 030
     Dates: start: 20000101, end: 20020101
  2. NATALIZUMAB [Suspect]
     Indication: MULTIPLE SCLEROSIS
     Dosage: 300 MG; QM; IV
     Route: 042
     Dates: start: 20050209, end: 20050209
  3. PREMARIN [Concomitant]
  4. AMITRIPTYLINE [Concomitant]
  5. LISINOPRIL [Concomitant]
  6. PERCOCET [Concomitant]

REACTIONS (8)
  - ANAEMIA [None]
  - DISEASE RECURRENCE [None]
  - HERPES SIMPLEX [None]
  - INFLUENZA LIKE ILLNESS [None]
  - MENINGITIS HERPES [None]
  - PHOTOPHOBIA [None]
  - SCINTILLATING SCOTOMA [None]
  - THERAPY NON-RESPONDER [None]
